FAERS Safety Report 16896171 (Version 2)
Quarter: 2019Q4

REPORT INFORMATION
  Report Type: Spontaneous
  Country: ES (occurrence: ES)
  Receive Date: 20191008
  Receipt Date: 20191101
  Transmission Date: 20200122
  Serious: Yes (Hospitalization)
  Sender: FDA-Public Use
  Company Number: ES-TEVA-2019-ES-1118462

PATIENT
  Age: 70 Year
  Sex: Male

DRUGS (12)
  1. FUROSEMIDE. [Concomitant]
     Active Substance: FUROSEMIDE
     Dosage: HAD BEEN RECEIVING FOR MORE THAN A YEAR
     Route: 065
  2. GLIMEPIRIDE. [Concomitant]
     Active Substance: GLIMEPIRIDE
     Indication: DIABETES MELLITUS
     Dosage: HAD BEEN RECEIVING FOR MORE THAN A YEAR
     Route: 065
  3. TOPIRAMATE. [Suspect]
     Active Substance: TOPIRAMATE
     Indication: AFFECTIVE DISORDER
     Dosage: 50 MILLIGRAM DAILY; HAD STARTED 5 MONTHS PRIOR TO THE ADMISSION
     Route: 065
  4. TOPIRAMATE. [Interacting]
     Active Substance: TOPIRAMATE
     Dosage: 100 MILLIGRAM DAILY; HAD STARTED 2 MONTHS PRIOR TO THE ADMISSION
     Route: 065
  5. CARBIDOPA/LEVODOPA [Concomitant]
     Active Substance: CARBIDOPA\LEVODOPA
     Indication: PARKINSON^S DISEASE
     Dosage: HAD BEEN RECEIVING FOR MORE THAN A YEAR
     Route: 065
  6. METFORMIN [Concomitant]
     Active Substance: METFORMIN HYDROCHLORIDE
     Indication: DIABETES MELLITUS
     Dosage: HAD BEEN RECEIVING FOR MORE THAN A YEAR
     Route: 065
  7. PRIMIDONE. [Concomitant]
     Active Substance: PRIMIDONE
     Dosage: HAD BEEN RECEIVING FOR MORE THAN A YEAR
     Route: 065
  8. METHYLPREDNISOLONE. [Concomitant]
     Active Substance: METHYLPREDNISOLONE
     Dosage: STARTED 4 MONTHS PRIOR TO ADMISSION
     Route: 065
  9. EPROSARTAN/HYDROCHLOROTHIAZIDE [Interacting]
     Active Substance: EPROSARTAN\HYDROCHLOROTHIAZIDE
     Indication: HYPERTENSION
     Dosage: HAD BEEN RECEIVING FOR MORE THAN A YEAR
     Route: 065
  10. DOXAZOSIN [Concomitant]
     Active Substance: DOXAZOSIN MESYLATE
     Dosage: HAD BEEN RECEIVING FOR MORE THAN A YEAR
     Route: 065
  11. SITAGLIPTIN [Concomitant]
     Active Substance: SITAGLIPTIN
     Indication: DIABETES MELLITUS
     Dosage: HAD BEEN RECEIVING FOR MORE THAN A YEAR
     Route: 065
  12. OXYBUTYNIN. [Concomitant]
     Active Substance: OXYBUTYNIN CHLORIDE
     Dosage: HAD BEEN RECEIVING FOR MORE THAN A YEAR
     Route: 065

REACTIONS (5)
  - Cholestasis [Recovered/Resolved]
  - Drug interaction [Recovered/Resolved]
  - Decreased appetite [Unknown]
  - Weight decreased [Unknown]
  - Normochromic normocytic anaemia [Unknown]
